FAERS Safety Report 21035082 (Version 1)
Quarter: 2022Q3

REPORT INFORMATION
  Report Type: Spontaneous
  Country: FR (occurrence: FR)
  Receive Date: 20220701
  Receipt Date: 20220701
  Transmission Date: 20221027
  Serious: Yes (Other)
  Sender: FDA-Public Use
  Company Number: FR-TEO-20221486

PATIENT
  Sex: Male

DRUGS (132)
  1. ACETAMINOPHEN [Suspect]
     Active Substance: ACETAMINOPHEN
     Indication: Product used for unknown indication
     Dates: start: 20160616
  2. DAFALGAN [Suspect]
     Active Substance: ACETAMINOPHEN
     Indication: Product used for unknown indication
     Dosage: 1G 3 TIMES A DAY
     Dates: start: 20160818
  3. DAFALGAN [Suspect]
     Active Substance: ACETAMINOPHEN
     Dosage: 1G 3 TIMES A DAY
     Dates: start: 20170529
  4. DAFALGAN [Suspect]
     Active Substance: ACETAMINOPHEN
     Dosage: 1G 3 TIMES A DAY
     Dates: start: 20160704
  5. DAFALGAN [Suspect]
     Active Substance: ACETAMINOPHEN
     Dosage: 1G 3 TIMES A DAY
     Dates: start: 20160722
  6. DOLIPRANE [Suspect]
     Active Substance: ACETAMINOPHEN
     Indication: Product used for unknown indication
     Dosage: 1 G 4 TIMES A DAY. TO BE RENEWED 6 MONTHS
     Dates: start: 20210421
  7. DOLIPRANE [Suspect]
     Active Substance: ACETAMINOPHEN
     Dosage: 1 G 6 TIMES A MONTH
     Dates: start: 20200917
  8. DOLIPRANE [Suspect]
     Active Substance: ACETAMINOPHEN
     Dosage: 2 CAPSULES 4 TIMES A DAY
     Dates: start: 20160622
  9. DOLIPRANE [Suspect]
     Active Substance: ACETAMINOPHEN
     Dosage: 1 GRAM 4 TIMES A DAY
     Dates: start: 20200818
  10. DOLIPRANE [Suspect]
     Active Substance: ACETAMINOPHEN
     Dosage: 1 G 4 TIMES A DAY. TO BE RENEWED 6 MONTHS
     Dates: start: 20220201
  11. DOLIPRANE [Suspect]
     Active Substance: ACETAMINOPHEN
     Dosage: 1 G 4 TIMES A DAY
     Dates: start: 20201228
  12. DOLIPRANE [Suspect]
     Active Substance: ACETAMINOPHEN
     Dosage: 1 G 4 TIMES A DAY. TO BE RENEWED 6 MONTHS
     Dates: start: 20210917
  13. LAMALINE (ACETAMINOPHEN\CAFFEINE\OPIUM) [Suspect]
     Active Substance: ACETAMINOPHEN\CAFFEINE\OPIUM
     Indication: Product used for unknown indication
     Dosage: 4 CAPSULES/DAY
     Dates: start: 20161208
  14. TOPIRAMATE [Suspect]
     Active Substance: TOPIRAMATE
     Indication: Product used for unknown indication
     Dosage: 15 MG IN THE MORNING AND 15 MG IN THE EVENING A R 3 TIMES
     Dates: start: 20200120
  15. CYAMEMAZINE [Suspect]
     Active Substance: CYAMEMAZINE
     Indication: Product used for unknown indication
     Dosage: 30 DROPS IN THE EVENING
     Dates: start: 20210421
  16. SULFACETAMIDE SODIUM [Suspect]
     Active Substance: SULFACETAMIDE SODIUM
     Indication: Product used for unknown indication
     Dates: start: 20160622
  17. AMOXICILLIN\CLAVULANATE POTASSIUM [Suspect]
     Active Substance: AMOXICILLIN\CLAVULANATE POTASSIUM
     Indication: Product used for unknown indication
     Dosage: 1 DF MORNING, NOON AND EVENING
     Dates: start: 20160616
  18. PROPRANOLOL [Suspect]
     Active Substance: PROPRANOLOL HYDROCHLORIDE
     Indication: Product used for unknown indication
     Dosage: 0.5-1 DOSAGE FORM IN THE MORNING
     Dates: start: 20210917
  19. PROPRANOLOL [Suspect]
     Active Substance: PROPRANOLOL HYDROCHLORIDE
     Dosage: 1 TABLET IN THE MORNING
     Dates: start: 20220201
  20. PROPRANOLOL [Suspect]
     Active Substance: PROPRANOLOL HYDROCHLORIDE
     Dosage: 0.5-1 DOSAGE FORM IN THE MORNING
     Dates: start: 20201228
  21. PIROXICAM BETADEX [Suspect]
     Active Substance: PIROXICAM BETADEX
     Indication: Product used for unknown indication
     Dosage: 1 TABLET/DAY
     Dates: start: 20160722
  22. PIROXICAM BETADEX [Suspect]
     Active Substance: PIROXICAM BETADEX
     Dosage: 1 TABLET/DAY
     Dates: start: 20160704
  23. AUGMENTIN [Suspect]
     Active Substance: AMOXICILLIN\CLAVULANATE POTASSIUM
     Indication: Product used for unknown indication
     Dosage: SACHET 1 MORNING, 1 NOON AND 1 EVENING
     Dates: start: 20160622
  24. KETOPROFEN [Suspect]
     Active Substance: KETOPROFEN
     Indication: Product used for unknown indication
     Dosage: 2 CAPSULES/DAY
     Dates: start: 20170104
  25. ACUPAN [Suspect]
     Active Substance: NEFOPAM HYDROCHLORIDE
     Indication: Product used for unknown indication
     Dosage: 1 AMPOULE 3 TIMES A DAY
     Dates: start: 20190520
  26. ACUPAN [Suspect]
     Active Substance: NEFOPAM HYDROCHLORIDE
     Dosage: 1 VIAL 3 TIMES A DAY AR 2 TIMES
     Dates: start: 20181129
  27. ACUPAN [Suspect]
     Active Substance: NEFOPAM HYDROCHLORIDE
     Dosage: 1 AMPOULE 3 TIMES A DAY
     Dates: start: 20190903
  28. ACUPAN [Suspect]
     Active Substance: NEFOPAM HYDROCHLORIDE
     Dosage: 1 AMPOULE 3 TIMES A DAY
     Dates: start: 20200504
  29. ACUPAN [Suspect]
     Active Substance: NEFOPAM HYDROCHLORIDE
     Dosage: 1 AMPOULE 3 TIMES A DAY
     Dates: start: 20180426
  30. ACUPAN [Suspect]
     Active Substance: NEFOPAM HYDROCHLORIDE
     Dosage: 1 AMPOULE 3 TIMES A DAY
     Dates: start: 20170904
  31. ACUPAN [Suspect]
     Active Substance: NEFOPAM HYDROCHLORIDE
     Dosage: 1 AMPOULE 3 TIMES A DAY
     Dates: start: 20180904
  32. ACUPAN [Suspect]
     Active Substance: NEFOPAM HYDROCHLORIDE
     Dosage: 1 AMPOULE 3 TIMES A DAY
     Dates: start: 20180212
  33. ACUPAN [Suspect]
     Active Substance: NEFOPAM HYDROCHLORIDE
     Dosage: 1 AMPOULE 3 TIMES A DAY
     Dates: start: 20180828
  34. ACUPAN [Suspect]
     Active Substance: NEFOPAM HYDROCHLORIDE
     Dosage: 1 AMPOULE 3X4 TIMES A DAY
     Dates: start: 20200120
  35. ACUPAN [Suspect]
     Active Substance: NEFOPAM HYDROCHLORIDE
     Dosage: UNKNOWN DOSAGE 3 TIMES A DAY
     Dates: start: 20180523
  36. ACUPAN [Suspect]
     Active Substance: NEFOPAM HYDROCHLORIDE
     Dosage: 1 AMPOULE 3 TIMES A DAY
     Dates: start: 20200917
  37. ACUPAN [Suspect]
     Active Substance: NEFOPAM HYDROCHLORIDE
     Dosage: 1 AMPOULE 3 TIMES A DAY
     Dates: start: 20190307
  38. ACUPAN [Suspect]
     Active Substance: NEFOPAM HYDROCHLORIDE
     Dosage: UNKNOWN DOSAGE 3 TIMES A DAY
     Dates: start: 20180109
  39. AMITRIPTYLINE [Suspect]
     Active Substance: AMITRIPTYLINE
     Indication: Product used for unknown indication
     Dosage: 0.5 TABLET AT BEDTIME
     Route: 048
     Dates: start: 20170104
  40. AMITRIPTYLINE [Suspect]
     Active Substance: AMITRIPTYLINE
     Dosage: 1 TABLET AT BEDTIME
     Route: 048
     Dates: start: 20170111
  41. ACETAMINOPHEN\CODEINE PHOSPHATE [Suspect]
     Active Substance: ACETAMINOPHEN\CODEINE PHOSPHATE
     Indication: Product used for unknown indication
     Dosage: NOT ASSOCIATE WITH DOLIPRANE
     Dates: start: 20160622
  42. CYAMEMAZINE [Suspect]
     Active Substance: CYAMEMAZINE
     Indication: Product used for unknown indication
     Dosage: 1 DOSAGE FORM AT BEDTIME
     Dates: start: 20181129
  43. CYAMEMAZINE [Suspect]
     Active Substance: CYAMEMAZINE
     Dosage: 1 DOSAGE FORM IN THE EVENING
     Dates: start: 20220121
  44. CYAMEMAZINE [Suspect]
     Active Substance: CYAMEMAZINE
     Dosage: 1 TABLET IN THE EVENING
     Dates: start: 20190307
  45. CYAMEMAZINE [Suspect]
     Active Substance: CYAMEMAZINE
     Dosage: 1 DOSAGE FORM AT BEDTIME AR 2 TIMES
     Dates: start: 20190829
  46. CYAMEMAZINE [Suspect]
     Active Substance: CYAMEMAZINE
     Dosage: 1 DOSAGE FORM AT BEDTIME AR 2 TIMES
     Dates: start: 20190520
  47. CYAMEMAZINE [Suspect]
     Active Substance: CYAMEMAZINE
     Dosage: 1 DOSAGE FORM IN THE EVENING. ORDER A R 2/ TIMES
     Dates: start: 20210625
  48. CYAMEMAZINE [Suspect]
     Active Substance: CYAMEMAZINE
     Dosage: 0.5 TABLET AT BEDTIME
     Dates: start: 20171017
  49. CYAMEMAZINE [Suspect]
     Active Substance: CYAMEMAZINE
     Dosage: UNKNOWN DOSAGE AT BEDTIME
     Dates: start: 20180426
  50. CYAMEMAZINE [Suspect]
     Active Substance: CYAMEMAZINE
     Dosage: IN THE EVENING A R 3/TIMES
     Dates: start: 20200619
  51. CYAMEMAZINE [Suspect]
     Active Substance: CYAMEMAZINE
     Dosage: IN THE EVENING
     Dates: start: 20200504
  52. CYAMEMAZINE [Suspect]
     Active Substance: CYAMEMAZINE
     Dosage: 1 DOSAGE FORM AT BEDTIME
     Dates: start: 20180523
  53. CYAMEMAZINE [Suspect]
     Active Substance: CYAMEMAZINE
     Dosage: 1 DOSAGE FORM IN THE EVENING
     Dates: start: 20220408
  54. CYAMEMAZINE [Suspect]
     Active Substance: CYAMEMAZINE
     Dosage: 1 DOSAGE FORM AT BEDTIME
     Dates: start: 20180615
  55. CYAMEMAZINE [Suspect]
     Active Substance: CYAMEMAZINE
     Dosage: IN THE EVENING
     Dates: start: 20200120
  56. CYAMEMAZINE [Suspect]
     Active Substance: CYAMEMAZINE
     Dosage: AR 6 MONTHS
     Dates: start: 20190903
  57. CYAMEMAZINE [Suspect]
     Active Substance: CYAMEMAZINE
     Dosage: 1 TABLET IN THE EVENING
     Dates: start: 20210917
  58. CYAMEMAZINE [Suspect]
     Active Substance: CYAMEMAZINE
     Dosage: IN THE EVENING
     Dates: start: 20200417
  59. CYAMEMAZINE [Suspect]
     Active Substance: CYAMEMAZINE
     Dosage: 1 DOSAGE FORM AT BEDTIME AR 3 TIMES
     Dates: start: 20190222
  60. CYAMEMAZINE [Suspect]
     Active Substance: CYAMEMAZINE
     Dosage: 1 DOSAGE FORM AT BEDTIME AR 3 TIMES
     Dates: start: 20190222
  61. CYAMEMAZINE [Suspect]
     Active Substance: CYAMEMAZINE
     Dosage: 1 DOSAGE FORM IN THE EVENING
     Dates: start: 20220201
  62. CYAMEMAZINE [Suspect]
     Active Substance: CYAMEMAZINE
     Dosage: 1 DOSAGE FORM IN THE EVENING AR 1 TIME
     Dates: start: 20191121
  63. CYAMEMAZINE [Suspect]
     Active Substance: CYAMEMAZINE
     Dosage: 1 DOSAGE FORM IN THE EVENING
     Dates: start: 20210930
  64. CYAMEMAZINE [Suspect]
     Active Substance: CYAMEMAZINE
     Dosage: 1 DOSAGE FORM AT BEDTIME
     Dates: start: 20180212
  65. CYAMEMAZINE [Suspect]
     Active Substance: CYAMEMAZINE
     Dosage: UNKNOWN DOSAGE IN THE EVENING
     Dates: start: 20180116
  66. CYAMEMAZINE [Suspect]
     Active Substance: CYAMEMAZINE
     Dosage: 1 DOSAGE FORM AT BEDTIME
     Dates: start: 20180904
  67. CYAMEMAZINE [Suspect]
     Active Substance: CYAMEMAZINE
     Dosage: 1 TABLET IN THE EVENING
     Dates: start: 20201228
  68. CYAMEMAZINE [Suspect]
     Active Substance: CYAMEMAZINE
     Dosage: 1 TABLET IN THE EVENING
     Dates: start: 20180828
  69. CYAMEMAZINE [Suspect]
     Active Substance: CYAMEMAZINE
     Dosage: 1 TABLET AT BEDTIME
     Dates: start: 20180109
  70. CYAMEMAZINE [Suspect]
     Active Substance: CYAMEMAZINE
     Dosage: 1 TABLET IN THE EVENING
     Dates: start: 20200917
  71. CYMBALTA [Suspect]
     Active Substance: DULOXETINE HYDROCHLORIDE
     Indication: Product used for unknown indication
     Dosage: 2 DOSAGE FORMS IN THE MORNING
     Dates: start: 20180420
  72. CYMBALTA [Suspect]
     Active Substance: DULOXETINE HYDROCHLORIDE
     Dosage: 2 DOSAGE FORM IN THE MORNING
     Dates: start: 20210625
  73. CYMBALTA [Suspect]
     Active Substance: DULOXETINE HYDROCHLORIDE
     Dosage: 2 DOSAGE FORMS IN THE MORNING
     Dates: start: 20180116
  74. CYMBALTA [Suspect]
     Active Substance: DULOXETINE HYDROCHLORIDE
     Dosage: 2 CAPSULES
     Dates: start: 20190520
  75. CYMBALTA [Suspect]
     Active Substance: DULOXETINE HYDROCHLORIDE
     Dosage: 2 DOSAGE FORMS IN THE MORNING
     Dates: start: 20180220
  76. CYMBALTA [Suspect]
     Active Substance: DULOXETINE HYDROCHLORIDE
     Dosage: 1 CAPSULE IN THE MORNING AND 1 IN THE EVENING
     Dates: start: 20220201
  77. CYMBALTA [Suspect]
     Active Substance: DULOXETINE HYDROCHLORIDE
     Dosage: 2 CAPSULES IN THE MORNING
     Dates: start: 20180904
  78. CYMBALTA [Suspect]
     Active Substance: DULOXETINE HYDROCHLORIDE
     Dosage: 2 DOSAGE FORMS IN THE MORNING
     Dates: start: 20190829
  79. CYMBALTA [Suspect]
     Active Substance: DULOXETINE HYDROCHLORIDE
     Dosage: 1 TABLET IN THE MORNING
     Dates: start: 20170904
  80. CYMBALTA [Suspect]
     Active Substance: DULOXETINE HYDROCHLORIDE
     Dates: start: 20200417
  81. CYMBALTA [Suspect]
     Active Substance: DULOXETINE HYDROCHLORIDE
     Dosage: 2 CAPSULES
     Dates: start: 20190307
  82. CYMBALTA [Suspect]
     Active Substance: DULOXETINE HYDROCHLORIDE
     Dosage: 2 DOSAGE FORMS IN THE EVENING
     Dates: start: 20190222
  83. CYMBALTA [Suspect]
     Active Substance: DULOXETINE HYDROCHLORIDE
     Dosage: 1 TABLET IN THE EVENING
     Dates: start: 20170522
  84. CYMBALTA [Suspect]
     Active Substance: DULOXETINE HYDROCHLORIDE
     Dosage: 1 DOSAGE FORM IN THE MORNING AND 1 IN THE EVENING
     Dates: start: 20200120
  85. CYMBALTA [Suspect]
     Active Substance: DULOXETINE HYDROCHLORIDE
     Dosage: 2 CAPSULES IN THE MORNING
     Dates: start: 20180212
  86. CYMBALTA [Suspect]
     Active Substance: DULOXETINE HYDROCHLORIDE
     Dosage: 1 TABLET IN THE MORNING
     Dates: start: 20170810
  87. CYMBALTA [Suspect]
     Active Substance: DULOXETINE HYDROCHLORIDE
     Dosage: 2 CAPSULES IN THE MORNING
     Dates: start: 20180109
  88. CYMBALTA [Suspect]
     Active Substance: DULOXETINE HYDROCHLORIDE
     Dosage: 2 CAPSULES IN THE EVENING
     Dates: start: 20180523
  89. CYMBALTA [Suspect]
     Active Substance: DULOXETINE HYDROCHLORIDE
     Dosage: 2 DOSAGE FORMS IN THE MORNING
     Dates: start: 20190903
  90. CYMBALTA [Suspect]
     Active Substance: DULOXETINE HYDROCHLORIDE
     Dosage: 2 CAPSULES IN THE EVENING
     Dates: start: 20180426
  91. CYMBALTA [Suspect]
     Active Substance: DULOXETINE HYDROCHLORIDE
     Dosage: 2 DOSAGE FORMS IN THE MORNING AND 2 IN THE EVENING
     Dates: start: 20220408
  92. CYMBALTA [Suspect]
     Active Substance: DULOXETINE HYDROCHLORIDE
     Dosage: 2 CAPSULES IN THE MORNING
     Dates: start: 20180615
  93. CYMBALTA [Suspect]
     Active Substance: DULOXETINE HYDROCHLORIDE
     Dosage: 1 DOSAGE FORM IN THE MORNING AND 1 IN THE EVENING
     Dates: start: 20200917
  94. CYMBALTA [Suspect]
     Active Substance: DULOXETINE HYDROCHLORIDE
     Dosage: 2 CAPSULES IN THE EVENING
     Dates: start: 20180828
  95. CYMBALTA [Suspect]
     Active Substance: DULOXETINE HYDROCHLORIDE
     Dosage: 1 CAPSULE IN THE MORNING AND 1 IN THE EVENING
     Dates: start: 20210917
  96. CYMBALTA [Suspect]
     Active Substance: DULOXETINE HYDROCHLORIDE
     Dosage: 2 DOSAGE FORMS IN THE MORNING
     Dates: start: 20191121
  97. CYMBALTA [Suspect]
     Active Substance: DULOXETINE HYDROCHLORIDE
     Dates: start: 20200619
  98. CYMBALTA [Suspect]
     Active Substance: DULOXETINE HYDROCHLORIDE
     Dosage: 1 DOSAGE FORM IN THE MORNING AND 1 IN THE EVENING
     Dates: start: 20210930
  99. CYMBALTA [Suspect]
     Active Substance: DULOXETINE HYDROCHLORIDE
     Dosage: 1 TABLET IN THE MORNING
     Dates: start: 20171017
  100. CYMBALTA [Suspect]
     Active Substance: DULOXETINE HYDROCHLORIDE
     Dosage: 2 CAPSULES IN THE MORNING
     Dates: start: 20181129
  101. CYMBALTA [Suspect]
     Active Substance: DULOXETINE HYDROCHLORIDE
     Dates: start: 20200504
  102. CYMBALTA [Suspect]
     Active Substance: DULOXETINE HYDROCHLORIDE
     Dosage: 1 DOSAGE FORM IN THE MORNING AND 1 IN THE EVENING
     Dates: start: 20210121
  103. CYMBALTA [Suspect]
     Active Substance: DULOXETINE HYDROCHLORIDE
     Dosage: 1 CAPSULE IN THE MORNING AND 1 IN THE EVENING
     Dates: start: 20210421
  104. CYMBALTA [Suspect]
     Active Substance: DULOXETINE HYDROCHLORIDE
     Dosage: 2 DOSAGE FORMS IN THE MORNING
     Dates: start: 20190222
  105. CYMBALTA [Suspect]
     Active Substance: DULOXETINE HYDROCHLORIDE
     Dosage: 1 DOSAGE FORM IN THE MORNING AND 1 IN THE EVENING
     Dates: start: 20201228
  106. AMITRIPTYLINE HYDROCHLORIDE [Suspect]
     Active Substance: AMITRIPTYLINE HYDROCHLORIDE
     Indication: Product used for unknown indication
     Dosage: 30 DROPS IN THE EVENING
     Dates: start: 20210930
  107. AMITRIPTYLINE HYDROCHLORIDE [Suspect]
     Active Substance: AMITRIPTYLINE HYDROCHLORIDE
     Dosage: 30 DROPS IN THE EVENING
     Dates: start: 20220201
  108. AMITRIPTYLINE HYDROCHLORIDE [Suspect]
     Active Substance: AMITRIPTYLINE HYDROCHLORIDE
     Dates: start: 20200818
  109. AMITRIPTYLINE HYDROCHLORIDE [Suspect]
     Active Substance: AMITRIPTYLINE HYDROCHLORIDE
     Dosage: 30 DROPS IN THE EVENING
     Dates: start: 20201228
  110. AMITRIPTYLINE HYDROCHLORIDE [Suspect]
     Active Substance: AMITRIPTYLINE HYDROCHLORIDE
     Dosage: 30 DROPS AT BEDTIME
     Dates: start: 20220408
  111. AMITRIPTYLINE HYDROCHLORIDE [Suspect]
     Active Substance: AMITRIPTYLINE HYDROCHLORIDE
     Dosage: 30 DROPS IN THE EVENING
     Dates: start: 20210917
  112. TRAMADOL [Suspect]
     Active Substance: TRAMADOL
     Indication: Product used for unknown indication
     Dosage: 1 CAPSULE/DAY
     Dates: start: 20160616
  113. AMITRIPTYLINE HYDROCHLORIDE [Suspect]
     Active Substance: AMITRIPTYLINE HYDROCHLORIDE
     Indication: Product used for unknown indication
     Dosage: 1 TABLET AT BEDTIME
     Dates: start: 20170330
  114. AMITRIPTYLINE HYDROCHLORIDE [Suspect]
     Active Substance: AMITRIPTYLINE HYDROCHLORIDE
     Dosage: 1 TABLET AT BEDTIME
     Dates: start: 20170320
  115. AMITRIPTYLINE HYDROCHLORIDE [Suspect]
     Active Substance: AMITRIPTYLINE HYDROCHLORIDE
     Dates: start: 2017
  116. AMITRIPTYLINE HYDROCHLORIDE [Suspect]
     Active Substance: AMITRIPTYLINE HYDROCHLORIDE
     Dosage: 75 MG IN THE EVENING
     Dates: start: 20170502
  117. AMITRIPTYLINE HYDROCHLORIDE [Suspect]
     Active Substance: AMITRIPTYLINE HYDROCHLORIDE
     Dosage: 75 MG IN THE EVENING
     Dates: start: 20170904
  118. AMITRIPTYLINE HYDROCHLORIDE [Suspect]
     Active Substance: AMITRIPTYLINE HYDROCHLORIDE
     Dosage: 2 DOSAGE FORMS AT BEDTIME
     Dates: start: 20180220
  119. ESOMEPRAZOLE [Suspect]
     Active Substance: ESOMEPRAZOLE
     Indication: Product used for unknown indication
     Dosage: 1 CP/DIE
     Dates: start: 20170104
  120. CYMBALTA [Suspect]
     Active Substance: DULOXETINE HYDROCHLORIDE
     Indication: Product used for unknown indication
     Dosage: 1 TABLET/DAY
     Dates: start: 20170418
  121. ZOPICLONE [Suspect]
     Active Substance: ZOPICLONE
     Indication: Product used for unknown indication
     Dosage: 1 DOSAGE FORM BEFORE BEDTIME. A R 2/TIMES
     Dates: start: 20220121
  122. ZOPICLONE [Suspect]
     Active Substance: ZOPICLONE
     Dosage: 1 TABLET BEFORE BEDTIME. TO BE RENEWED 6/MONTH
     Dates: start: 20201228
  123. ZOPICLONE [Suspect]
     Active Substance: ZOPICLONE
     Dosage: 1 TABLET BEFORE BEDTIME
     Dates: start: 20220110
  124. ZOPICLONE [Suspect]
     Active Substance: ZOPICLONE
     Dosage: 1 DOSAGE FORM BEFORE BEDTIME. TO BE RENEWED TWICE
     Dates: start: 20220408
  125. ZOPICLONE [Suspect]
     Active Substance: ZOPICLONE
     Dosage: 1 DOSAGE FORM BEFORE BEDTIME. A R 3/TIMES
     Dates: start: 20210930
  126. TRAMADOL HYDROCHLORIDE [Suspect]
     Active Substance: TRAMADOL HYDROCHLORIDE
     Indication: Product used for unknown indication
     Dosage: 1 CP MORNING, NOON AND EVENING
     Dates: start: 20160722
  127. TRAMADOL HYDROCHLORIDE [Suspect]
     Active Substance: TRAMADOL HYDROCHLORIDE
     Dosage: 1 CP MORNING, NOON AND EVENING
     Dates: start: 20161004
  128. TRAMADOL HYDROCHLORIDE [Suspect]
     Active Substance: TRAMADOL HYDROCHLORIDE
     Dosage: 1 CP MORNING, NOON AND EVENING
     Dates: start: 20160704
  129. TRAMADOL HYDROCHLORIDE [Suspect]
     Active Substance: TRAMADOL HYDROCHLORIDE
     Dosage: 1 CP MORNING AND EVENING
     Dates: start: 20170529
  130. TRAMADOL HYDROCHLORIDE [Suspect]
     Active Substance: TRAMADOL HYDROCHLORIDE
     Dosage: 1 CP MORNING, NOON AND EVENING
     Dates: start: 20160818
  131. INDOMETHACIN [Suspect]
     Active Substance: INDOMETHACIN
     Indication: Product used for unknown indication
     Dosage: 2 CAPSULES/DAY
     Dates: start: 20170330
  132. METHYLPREDNISOLONE [Suspect]
     Active Substance: METHYLPREDNISOLONE
     Indication: Product used for unknown indication
     Dates: start: 20160617

REACTIONS (3)
  - Depression [Not Recovered/Not Resolved]
  - Diffuse axonal injury [Not Recovered/Not Resolved]
  - Amyotrophy [Not Recovered/Not Resolved]
